FAERS Safety Report 6915508-4 (Version None)
Quarter: 2010Q3

REPORT INFORMATION
  Report Type: 
  Country: None (occurrence: None)
  Receive Date: 20100804
  Receipt Date: 20100722
  Transmission Date: 20110219
  Serious: Yes (Death, Other)
  Sender: FDA-Public Use
  Company Number: CL-160-2010

PATIENT
  Age: 68 Year
  Sex: Female

DRUGS (15)
  1. CIPROFLOXACIN IN DEXTROSE [Suspect]
     Indication: PNEUMONIA
     Dosage: IV
     Route: 042
  2. INSULIN [Concomitant]
  3. FENTANYL [Concomitant]
  4. PROPOFOL [Concomitant]
  5. AZITHROMYCIN [Concomitant]
  6. CEFTRIAXONE [Concomitant]
  7. VANCOMYCIN [Concomitant]
  8. METRONIDAZOLE [Concomitant]
  9. CILASTATIN/IMIPENM [Concomitant]
  10. DOXYCYCLINE [Concomitant]
  11. SULFAMETHOXAZOLE AND TRIMETHOPRIM [Concomitant]
  12. CEFEPIME [Concomitant]
  13. SYNTHROID [Concomitant]
  14. ESTROGEN [Concomitant]
  15. HEART MEDICINE [Concomitant]

REACTIONS (2)
  - CARDIOPULMONARY FAILURE [None]
  - SEPSIS [None]
